FAERS Safety Report 4163116 (Version 2)
Quarter: 2013Q2

REPORT INFORMATION
  Report Type: Spontaneous
  Country: US (occurrence: None)
  Receive Date: 20040607
  Receipt Date: 20120827
  Transmission Date: 20140414
  Serious: Yes (Other)
  Sender: FDA-Public Use
  Company Number: 349935

PATIENT
  Sex: Female

DRUGS (2)
  1. VICTOZA [Suspect]
     Indication: PRODUCT USED FOR UNKNOWN INDICATION
     Dosage: 20 MG 1 PER ONE DOSE ORAL
     Route: 058
  2. VICTOZA [Suspect]
     Dosage: 20 MG 1 PER ONE DOSE ORAL
     Route: 058

REACTIONS (2)
  - Drug dose omission [None]
  - Blood glucose increased [None]
